FAERS Safety Report 9770110 (Version 2)
Quarter: 2013Q4

REPORT INFORMATION
  Report Type: Spontaneous
  Country: US (occurrence: US)
  Receive Date: 20131218
  Receipt Date: 20131218
  Transmission Date: 20140711
  Serious: No
  Sender: FDA-Public Use
  Company Number: US-VERTEX PHARMACEUTICALS INC-AE-2011-001013

PATIENT
  Age: 52 Year
  Sex: Female

DRUGS (9)
  1. INCIVEK [Suspect]
     Indication: HEPATITIS C
     Dates: start: 20110715
  2. RIBAVIRIN [Concomitant]
     Dates: start: 20110715
  3. PEGINTERFERON [Concomitant]
     Dates: start: 20110715
  4. CELEXA [Concomitant]
  5. LORATADINE [Concomitant]
  6. NAPROXEN [Concomitant]
  7. CALCIUM [Concomitant]
  8. VITAMIN D [Concomitant]
  9. CENTRUM SILVER [Concomitant]

REACTIONS (1)
  - Treatment failure [Recovered/Resolved]
